FAERS Safety Report 9451273 (Version 3)
Quarter: 2013Q4

REPORT INFORMATION
  Report Type: Spontaneous
  Country: JP (occurrence: JP)
  Receive Date: 20130809
  Receipt Date: 20131015
  Transmission Date: 20140711
  Serious: Yes (Hospitalization)
  Sender: FDA-Public Use
  Company Number: JP-009507513-1308JPN000822

PATIENT
  Age: 94 Year
  Sex: Female

DRUGS (6)
  1. BONALON [Suspect]
     Indication: OSTEOPOROSIS
     Dosage: 35 MG, QW
     Route: 048
     Dates: start: 20090828, end: 20121021
  2. ROCALTROL [Concomitant]
     Indication: OSTEOPOROSIS
     Dosage: 0.5 MICROGRAM, QD
     Dates: start: 2008
  3. GLAKAY [Concomitant]
     Indication: OSTEOPOROSIS
     Dosage: 45 MG, QD
     Route: 048
     Dates: start: 2008
  4. ELCITONIN [Concomitant]
     Indication: OSTEOPOROSIS
     Dosage: UNK
     Route: 030
     Dates: start: 2008
  5. THYRADIN [Concomitant]
     Indication: HYPOTHYROIDISM
     Dosage: 200 MICROGRAM, QD
     Route: 048
     Dates: start: 2005
  6. MEVALOTIN [Concomitant]
     Indication: HYPERLIPIDAEMIA
     Dosage: 20 MG, QD
     Route: 048
     Dates: start: 2005

REACTIONS (1)
  - Ulna fracture [Not Recovered/Not Resolved]
